FAERS Safety Report 6122291-1 (Version None)
Quarter: 2009Q1

REPORT INFORMATION
  Report Type: 
  Country: None (occurrence: None)
  Receive Date: 20090316
  Receipt Date: 20090316
  Transmission Date: 20090719
  Serious: Yes (Hospitalization)
  Sender: FDA-Public Use
  Company Number: None

PATIENT
  Age: 61 Year
  Sex: Female
  Weight: 59.8748 kg

DRUGS (2)
  1. CELEBREX [Suspect]
     Indication: COMPLEX REGIONAL PAIN SYNDROME
     Dosage: 1 CAPSULE ONCE PER DAY PO
     Route: 048
     Dates: start: 20090110, end: 20090207
  2. CELEBREX [Suspect]
     Indication: PROPHYLAXIS
     Dosage: 1 CAPSULE ONCE PER DAY PO
     Route: 048
     Dates: start: 20090110, end: 20090207

REACTIONS (3)
  - COLITIS ISCHAEMIC [None]
  - DIARRHOEA HAEMORRHAGIC [None]
  - VOMITING [None]
